FAERS Safety Report 18180675 (Version 2)
Quarter: 2020Q4

REPORT INFORMATION
  Report Type: Report from Study
  Country: US (occurrence: US)
  Receive Date: 20200821
  Receipt Date: 20201012
  Transmission Date: 20210113
  Serious: Yes (Death, Other)
  Sender: FDA-Public Use
  Company Number: US-GILEAD-2020-0490250

PATIENT
  Sex: Male

DRUGS (36)
  1. CODEINE;PARACETAMOL [Concomitant]
     Active Substance: ACETAMINOPHEN\CODEINE PHOSPHATE
  2. CARVEDILOL. [Concomitant]
     Active Substance: CARVEDILOL
  3. DESITIN [CHLOROXYLENOL;HEXACHLOROPHENE] [Concomitant]
  4. DICLOFENAC SODIUM. [Concomitant]
     Active Substance: DICLOFENAC SODIUM
  5. ISOSORBIDE MONONITRATE. [Concomitant]
     Active Substance: ISOSORBIDE MONONITRATE
  6. METFORMIN [Concomitant]
     Active Substance: METFORMIN HYDROCHLORIDE
  7. OFLOXACIN HYDROCHLORIDE [Concomitant]
     Active Substance: OFLOXACIN HYDROCHLORIDE
  8. SYMBICORT [Concomitant]
     Active Substance: BUDESONIDE\FORMOTEROL FUMARATE DIHYDRATE
  9. TRAVATAN [Concomitant]
     Active Substance: TRAVOPROST
  10. CIPRODEX [CIPROFLOXACIN LACTATE] [Concomitant]
  11. FLUTICASONE. [Concomitant]
     Active Substance: FLUTICASONE
  12. LACTULOSE. [Concomitant]
     Active Substance: LACTULOSE
  13. DUONEB [Concomitant]
     Active Substance: ALBUTEROL SULFATE\IPRATROPIUM BROMIDE
  14. AZTREONAM LYSINE [Suspect]
     Active Substance: AZTREONAM LYSINE
     Indication: CHRONIC OBSTRUCTIVE PULMONARY DISEASE
     Dosage: 75 MG, TID, QOM
     Route: 055
  15. CITRACAL + D3 [Concomitant]
  16. XOPENEX [Concomitant]
     Active Substance: LEVALBUTEROL HYDROCHLORIDE
  17. BENZONATATE. [Concomitant]
     Active Substance: BENZONATATE
  18. CLOPIDOGREL [Concomitant]
     Active Substance: CLOPIDOGREL BISULFATE
  19. COLACE [Concomitant]
     Active Substance: DOCUSATE SODIUM
  20. LOTEMAX [Concomitant]
     Active Substance: LOTEPREDNOL ETABONATE
  21. NITROGLYCERIN. [Concomitant]
     Active Substance: NITROGLYCERIN
  22. RANITIDINE HYDROCHLORIDE. [Concomitant]
     Active Substance: RANITIDINE HYDROCHLORIDE
  23. ALLERGY RELIEF [LORATADINE] [Concomitant]
  24. FINASTERIDE. [Concomitant]
     Active Substance: FINASTERIDE
  25. KETOROLAC [Concomitant]
     Active Substance: KETOROLAC TROMETHAMINE
  26. DORZOLAMIDE HYDROCHLORIDE. [Concomitant]
     Active Substance: DORZOLAMIDE HYDROCHLORIDE
  27. FUROSEMIDE. [Concomitant]
     Active Substance: FUROSEMIDE
  28. INCRUSE ELLIPTA [Concomitant]
     Active Substance: UMECLIDINIUM BROMIDE
  29. PREDNISONE. [Concomitant]
     Active Substance: PREDNISONE
  30. BRIMONIDINE TARTRATE. [Concomitant]
     Active Substance: BRIMONIDINE TARTRATE
  31. IPRATROPIUM BROMIDE. [Concomitant]
     Active Substance: IPRATROPIUM BROMIDE
  32. TRADJENTA [Concomitant]
     Active Substance: LINAGLIPTIN
  33. ATORVASTATIN CALCIUM. [Concomitant]
     Active Substance: ATORVASTATIN CALCIUM
  34. AZOPT [Concomitant]
     Active Substance: BRINZOLAMIDE
  35. GABAPENTIN. [Concomitant]
     Active Substance: GABAPENTIN
  36. TAMSULOSIN HYDROCHLORIDE. [Concomitant]
     Active Substance: TAMSULOSIN HYDROCHLORIDE

REACTIONS (3)
  - Cardiac pacemaker insertion [Recovered/Resolved]
  - Off label use [Not Recovered/Not Resolved]
  - Death [Fatal]
